FAERS Safety Report 7555606-8 (Version None)
Quarter: 2011Q2

REPORT INFORMATION
  Report Type: 
  Country: None (occurrence: None)
  Receive Date: 20110617
  Receipt Date: 20010328
  Transmission Date: 20111010
  Serious: Yes (Death, Hospitalization)
  Sender: FDA-Public Use
  Company Number: PHEH2001US02654

PATIENT
  Sex: Male

DRUGS (10)
  1. COZAAR [Concomitant]
  2. PLENDIL [Concomitant]
  3. EXELON [Suspect]
     Dosage: 4.5 MG, BID
     Route: 048
  4. DITROPAN [Concomitant]
  5. ASPIRIN [Concomitant]
     Dosage: UNK, UNK
  6. EXELON [Suspect]
     Indication: DEMENTIA
     Dosage: 1.5 MG, BID
     Route: 048
     Dates: start: 20000930
  7. ZOLOFT [Concomitant]
  8. SINEMET [Concomitant]
  9. EXELON [Suspect]
     Dosage: 3 MG, BID
     Route: 048
  10. EXELON [Suspect]
     Dosage: 6 MG, BID
     Route: 048
     Dates: end: 20010302

REACTIONS (3)
  - EROSIVE OESOPHAGITIS [None]
  - HAEMATEMESIS [None]
  - DYSPHAGIA [None]
